FAERS Safety Report 7277213-7 (Version None)
Quarter: 2011Q1

REPORT INFORMATION
  Report Type: 
  Country: None (occurrence: None)
  Receive Date: 20110131
  Receipt Date: 20110117
  Transmission Date: 20110831
  Serious: Yes (Death, Life-Threatening, Hospitalization)
  Sender: FDA-Public Use
  Company Number: 2010004966

PATIENT
  Age: 65 Year
  Sex: Female

DRUGS (15)
  1. NITROGLYCERIN [Concomitant]
  2. ATORVASTATIN (ATORVASTATIN) [Concomitant]
  3. ERLOTINIB (ERLOTINIB) (TABLET) (ERLOTINIB) [Suspect]
     Indication: PANCREATIC CARCINOMA METASTATIC
     Dosage: (100 MG,QD),ORAL
     Route: 048
     Dates: start: 20091020, end: 20101013
  4. CEFEPIME [Concomitant]
  5. GEMCITABINE [Suspect]
     Indication: PANCREATIC CARCINOMA METASTATIC
     Dosage: (935 MG,935 MG 1 X PER 1 WEEK),INTRAVENOUS
     Route: 042
     Dates: start: 20091020, end: 20101013
  6. ENOXAPARIN SODIUM [Concomitant]
  7. CARVEDILOL [Concomitant]
  8. NOREPINEPHRINE BITARTRATE [Concomitant]
  9. DIPYRONE (METAMIZOLE SODIUM) [Concomitant]
  10. ASPIRIN [Concomitant]
  11. HYDRALAZINE HCL [Concomitant]
  12. DIMORF [Concomitant]
  13. LASIX [Concomitant]
  14. TEICOPLANIN (TEICOPLANIN) [Concomitant]
  15. METHADONE (METHADONE) [Concomitant]

REACTIONS (9)
  - ACIDOSIS [None]
  - RENAL FAILURE ACUTE [None]
  - HYPERKALAEMIA [None]
  - HYPERTENSION [None]
  - ACUTE MYOCARDIAL INFARCTION [None]
  - CARDIOMYOPATHY [None]
  - LEFT VENTRICULAR DYSFUNCTION [None]
  - RESPIRATORY FAILURE [None]
  - PNEUMONIA [None]
